FAERS Safety Report 4349295-3 (Version None)
Quarter: 2004Q2

REPORT INFORMATION
  Report Type: 
  Country: None (occurrence: None)
  Receive Date: 20040428
  Receipt Date: 20011121
  Transmission Date: 20050107
  Serious: Yes (Hospitalization)
  Sender: FDA-Public Use
  Company Number: US-BRISTOL-MYERS SQUIBB COMPANY-11596715

PATIENT
  Age: 54 Year
  Sex: Male

DRUGS (14)
  1. BMS224818 [Concomitant]
     Dosage: REALLOCATION DATE: 12 DEC 2001
     Route: 042
     Dates: start: 20011212
  2. MYCOPHENOLATE MOFETIL [Suspect]
     Route: 048
     Dates: start: 20010627
  3. PREDNISONE [Suspect]
     Route: 048
     Dates: start: 20010629
  4. PANTOZOL [Concomitant]
     Dates: start: 20010628, end: 20011017
  5. AMPHO-MORONAL [Concomitant]
     Dates: start: 20010627
  6. L-THYROXINE [Concomitant]
     Dates: start: 19990101
  7. METOPROLOL SUCCINATE [Concomitant]
     Dates: start: 20010630
  8. COTRIM [Concomitant]
     Dates: start: 20010627
  9. SORTIS [Concomitant]
     Dates: start: 20010801
  10. CYMEVEN [Concomitant]
     Dates: start: 20010628, end: 20011119
  11. ENALAPRIL MALEATE [Concomitant]
     Dates: start: 20010725
  12. REDUCTO-SPEZIAL [Concomitant]
     Dates: start: 20010710
  13. LASIX [Concomitant]
     Dates: start: 20010630
  14. BONDIOL [Concomitant]
     Dates: start: 20010905

REACTIONS (1)
  - CYTOMEGALOVIRUS INFECTION [None]
